FAERS Safety Report 9608628 (Version 1)
Quarter: 2013Q4

REPORT INFORMATION
  Report Type: Spontaneous
  Country: AU (occurrence: AU)
  Receive Date: 20131009
  Receipt Date: 20131009
  Transmission Date: 20140711
  Serious: Yes (Death, Other)
  Sender: FDA-Public Use
  Company Number: AU-SA-2013SA099653

PATIENT
  Age: 67 Year
  Sex: Male

DRUGS (11)
  1. RIFAMPICIN [Suspect]
     Indication: PRODUCT USED FOR UNKNOWN INDICATION
     Route: 065
  2. SODIUM VALPROATE [Suspect]
     Indication: PRODUCT USED FOR UNKNOWN INDICATION
     Route: 065
  3. CLOPIDOGREL BISULFATE [Suspect]
     Indication: PRODUCT USED FOR UNKNOWN INDICATION
     Route: 065
  4. ALLOPURINOL [Suspect]
     Indication: PRODUCT USED FOR UNKNOWN INDICATION
     Route: 065
  5. FUSIDIC ACID [Suspect]
     Indication: PRODUCT USED FOR UNKNOWN INDICATION
     Route: 065
  6. DILATREND [Concomitant]
  7. ESOMEPRAZOLE [Concomitant]
  8. PREDNISOLONE [Concomitant]
  9. WARFARIN SODIUM [Concomitant]
  10. SERETIDE [Concomitant]
  11. SPIRIVA [Concomitant]

REACTIONS (5)
  - Death [Fatal]
  - Hypovolaemic shock [Unknown]
  - Pulmonary haemorrhage [Unknown]
  - Thrombocytopenia [Unknown]
  - Anaemia [Unknown]
